FAERS Safety Report 7625502-6 (Version None)
Quarter: 2011Q3

REPORT INFORMATION
  Report Type: 
  Country: None (occurrence: None)
  Receive Date: 20110721
  Receipt Date: 20100712
  Transmission Date: 20111222
  Serious: No
  Sender: FDA-Public Use
  Company Number: US-KINGPHARMUSA00001-K201000876

PATIENT
  Age: 13 Year
  Sex: Female

DRUGS (1)
  1. SEPTRA [Suspect]
     Indication: ESCHERICHIA INFECTION
     Dosage: UNK

REACTIONS (3)
  - HYPERSENSITIVITY [None]
  - PYREXIA [None]
  - RESPIRATORY RATE INCREASED [None]
